FAERS Safety Report 8427454-8 (Version None)
Quarter: 2012Q2

REPORT INFORMATION
  Report Type: 
  Country: None (occurrence: None)
  Receive Date: 20120611
  Receipt Date: 20120604
  Transmission Date: 20120825
  Serious: Yes (Hospitalization, Other)
  Sender: FDA-Public Use
  Company Number: JP-PFIZER INC-2011114466

PATIENT
  Age: 44 Year
  Sex: Male
  Weight: 76.9 kg

DRUGS (4)
  1. SUTENT [Suspect]
     Dosage: 37.5 MG, 1X/DAY
     Route: 048
     Dates: start: 20110602, end: 20110616
  2. SUTENT [Suspect]
     Dosage: 37.5 MG, 1X/DAY
     Route: 048
     Dates: start: 20110701, end: 20110729
  3. SUTENT [Suspect]
     Dosage: 25 MG, 1X/DAY
     Route: 048
     Dates: start: 20110819
  4. SUTENT [Suspect]
     Indication: RENAL CANCER
     Dosage: 50 MG, 1X/DAY
     Route: 048
     Dates: start: 20110520, end: 20110525

REACTIONS (4)
  - MALAISE [None]
  - DECREASED APPETITE [None]
  - EYE ALLERGY [None]
  - HYPERAMYLASAEMIA [None]
